FAERS Safety Report 22101917 (Version 3)
Quarter: 2023Q2

REPORT INFORMATION
  Report Type: Report from Study
  Country: US (occurrence: US)
  Receive Date: 20230316
  Receipt Date: 20230513
  Transmission Date: 20230721
  Serious: No
  Sender: FDA-Public Use
  Company Number: US-002147023-NVSC2023US057573

PATIENT
  Sex: Female

DRUGS (2)
  1. ILARIS [Suspect]
     Active Substance: CANAKINUMAB
     Indication: Product used for unknown indication
     Dosage: UNK
     Route: 065
  2. XIIDRA [Suspect]
     Active Substance: LIFITEGRAST
     Indication: Product used for unknown indication
     Dosage: UNK
     Route: 065

REACTIONS (8)
  - Withdrawal syndrome [Unknown]
  - Nausea [Unknown]
  - Pain [Unknown]
  - Intrusive thoughts [Unknown]
  - Dry eye [Unknown]
  - Insomnia [Unknown]
  - Eye pruritus [Unknown]
  - Ill-defined disorder [Unknown]
